FAERS Safety Report 6707545-X (Version None)
Quarter: 2010Q2

REPORT INFORMATION
  Report Type: 
  Country: None (occurrence: None)
  Receive Date: 20100429
  Receipt Date: 20100422
  Transmission Date: 20101027
  Serious: Yes (Other)
  Sender: FDA-Public Use
  Company Number: WAES 0708GBR00094

PATIENT
  Age: 40 Year
  Sex: Male

DRUGS (9)
  1. ISENTRESS [Suspect]
     Indication: HIV INFECTION
     Dosage: 400 MG/BID PO
     Route: 048
     Dates: start: 20070416
  2. DARUNAVIR (+) RITONAVIR [Suspect]
     Indication: HIV INFECTION
     Dosage: 600/100 MG/BID
     Dates: start: 20070416
  3. DARUNAVIR (+) RITONAVIR [Suspect]
     Indication: PATHOGEN RESISTANCE
     Dosage: 600/100 MG/BID
     Dates: start: 20070416
  4. NORVIR [Suspect]
  5. DARUNAVIR [Suspect]
  6. COMBIVIR [Concomitant]
  7. AZITHROMYCIN [Concomitant]
  8. DAPSONE [Concomitant]
  9. TENOFOVIR DISOPROXIL FUMARATE [Concomitant]

REACTIONS (6)
  - ARTHRALGIA [None]
  - CHONDROCALCINOSIS PYROPHOSPHATE [None]
  - ERYTHEMA [None]
  - GOUT [None]
  - LOCAL SWELLING [None]
  - PAIN [None]
